FAERS Safety Report 8634479 (Version 2)
Quarter: 2014Q1

REPORT INFORMATION
  Report Type: Spontaneous
  Country: JP (occurrence: None)
  Receive Date: 20120611
  Receipt Date: 20140203
  Transmission Date: 20141002
  Serious: Yes (Hospitalization, Other)
  Sender: FDA-Public Use
  Company Number: ADR-2010-9472

PATIENT
  Age: 57 Year
  Sex: Male

DRUGS (1)
  1. BACLOFEN [Suspect]
     Indication: MUSCLE SPASTICITY
     Dosage: DAILY, INTRATH
     Route: 037

REACTIONS (11)
  - Fall [None]
  - Femur fracture [None]
  - Dizziness [None]
  - Contusion [None]
  - Surgical procedure repeated [None]
  - Cerebral haemorrhage [None]
  - Balance disorder [None]
  - Contusion [None]
  - Femur fracture [None]
  - Surgical procedure repeated [None]
  - Cerebral haemorrhage [None]
